FAERS Safety Report 9982104 (Version 1)
Quarter: 2014Q1

REPORT INFORMATION
  Report Type: Spontaneous
  Country: US (occurrence: None)
  Receive Date: 20140306
  Receipt Date: 20140306
  Transmission Date: 20141002
  Serious: Yes (Hospitalization)
  Sender: FDA-Public Use
  Company Number: None

PATIENT
  Sex: Male
  Weight: 77.6 kg

DRUGS (1)
  1. WARFARIN [Suspect]
     Indication: DEEP VEIN THROMBOSIS
     Dates: start: 20090923, end: 20140227

REACTIONS (5)
  - Haemorrhage urinary tract [None]
  - Haematuria [None]
  - Nasopharyngitis [None]
  - Drug interaction [None]
  - International normalised ratio increased [None]
